FAERS Safety Report 9192988 (Version 1)
Quarter: 2013Q1

REPORT INFORMATION
  Report Type: Spontaneous
  Country: US (occurrence: None)
  Receive Date: 20130325
  Receipt Date: 20130325
  Transmission Date: 20140127
  Serious: No
  Sender: FDA-Public Use
  Company Number: None

PATIENT
  Sex: 0

DRUGS (2)
  1. KETALAR [Suspect]
     Dosage: KETALAR KETAMINE HCL INJECTABLE DOSAGE, INJECTION ROUTE, 10MG/ML, VIAL 20ML,  NDC 42023-113-10
     Route: 050
  2. XYLOCAINE [Suspect]
     Dosage: INJECTABLE FORM, INJECTION ROUTE, 10MG/ML, VIAL, 20ML SIZE, NDC 63323-482-27
     Route: 050

REACTIONS (3)
  - Drug label confusion [None]
  - Intercepted drug administration error [None]
  - Medication error [None]
